FAERS Safety Report 5383658-2 (Version None)
Quarter: 2007Q3

REPORT INFORMATION
  Report Type: 
  Country: None (occurrence: None)
  Receive Date: 20070706
  Receipt Date: 20070629
  Transmission Date: 20080115
  Serious: Yes (Life-Threatening, Hospitalization)
  Sender: FDA-Public Use
  Company Number: 16863

PATIENT
  Age: 54 Year
  Sex: Female
  Weight: 73.4827 kg

DRUGS (23)
  1. NIPENT [Suspect]
     Indication: CHRONIC LYMPHOCYTIC LEUKAEMIA
     Dosage: 7.56 MG ONCE IV
     Route: 042
     Dates: start: 20070411
  2. NIPENT [Suspect]
     Indication: CHRONIC LYMPHOCYTIC LEUKAEMIA
     Dosage: 7.56 MG ONCE IV
     Route: 042
     Dates: start: 20070502
  3. NIPENT [Suspect]
     Indication: CHRONIC LYMPHOCYTIC LEUKAEMIA
     Dosage: 4 MG ONCE IV
     Route: 042
     Dates: start: 20070530
  4. NIPENT [Suspect]
     Indication: CHRONIC LYMPHOCYTIC LEUKAEMIA
     Dosage: 4 MG ONCE IV
     Route: 042
     Dates: start: 20070627
  5. CYTOXAN [Suspect]
     Indication: CHRONIC LYMPHOCYTIC LEUKAEMIA
     Dosage: 1134 MG ONCE IV
     Route: 042
     Dates: start: 20070411
  6. CYTOXAN [Suspect]
     Indication: CHRONIC LYMPHOCYTIC LEUKAEMIA
     Dosage: 1134 MG ONCE IV
     Route: 042
     Dates: start: 20070502
  7. CYTOXAN [Suspect]
     Indication: CHRONIC LYMPHOCYTIC LEUKAEMIA
     Dosage: 1134 MG ONCE IV
     Route: 042
     Dates: start: 20070530
  8. CYTOXAN [Suspect]
     Indication: CHRONIC LYMPHOCYTIC LEUKAEMIA
     Dosage: 1134 MG ONCE IV
     Route: 042
     Dates: start: 20070627
  9. RITUXAN [Suspect]
     Indication: CHRONIC LYMPHOCYTIC LEUKAEMIA
     Dosage: 100 MG ONCE IV
     Route: 042
     Dates: start: 20070411
  10. RITUXAN [Suspect]
     Indication: CHRONIC LYMPHOCYTIC LEUKAEMIA
     Dosage: 100 MG ONCE IV
     Route: 042
     Dates: start: 20070502
  11. RITUXAN [Suspect]
     Indication: CHRONIC LYMPHOCYTIC LEUKAEMIA
     Dosage: 100 MG ONCE IV
     Route: 042
     Dates: start: 20070530
  12. RITUXAN [Suspect]
     Indication: CHRONIC LYMPHOCYTIC LEUKAEMIA
     Dosage: 100 MG ONCE IV
     Route: 042
     Dates: start: 20070627
  13. BACTRIM DS [Concomitant]
  14. AMITRIPTYLINE HCL [Concomitant]
  15. ACYCLOVIR [Concomitant]
  16. ATENOLOL [Concomitant]
  17. VITAMIN D [Concomitant]
  18. SPIRIVA [Concomitant]
  19. PULMICORT [Concomitant]
  20. CLARITIN [Concomitant]
  21. VICODIN [Concomitant]
  22. EFFEXOR XR [Concomitant]
  23. AMBIEN [Concomitant]

REACTIONS (12)
  - BLOOD PRESSURE DECREASED [None]
  - DIARRHOEA [None]
  - IMMUNOGLOBULINS DECREASED [None]
  - PAIN [None]
  - PNEUMONIA [None]
  - PULMONARY EMBOLISM [None]
  - SEPSIS [None]
  - SINUSITIS [None]
  - SKIN DISCOLOURATION [None]
  - SYSTEMIC INFLAMMATORY RESPONSE SYNDROME [None]
  - TACHYCARDIA [None]
  - VOMITING [None]
